FAERS Safety Report 14249731 (Version 1)
Quarter: 2017Q4

REPORT INFORMATION
  Report Type: Spontaneous
  Country: US (occurrence: US)
  Receive Date: 20171205
  Receipt Date: 20171205
  Transmission Date: 20180321
  Serious: Yes (Death, Life-Threatening, Other)
  Sender: FDA-Public Use
  Company Number: US-JNJFOC-20171128840

PATIENT

DRUGS (2)
  1. ACETAMINOPHEN. [Suspect]
     Active Substance: ACETAMINOPHEN
     Route: 065
  2. ACETAMINOPHEN. [Suspect]
     Active Substance: ACETAMINOPHEN
     Indication: PRODUCT USED FOR UNKNOWN INDICATION
     Route: 065

REACTIONS (10)
  - Liver injury [Fatal]
  - Multiple organ dysfunction syndrome [Fatal]
  - Circulatory collapse [Fatal]
  - Acute hepatic failure [Fatal]
  - Brain oedema [Fatal]
  - Overdose [Fatal]
  - Hepatic encephalopathy [Fatal]
  - Ammonia increased [Fatal]
  - Coma [Fatal]
  - Renal impairment [Fatal]
